FAERS Safety Report 24524302 (Version 3)
Quarter: 2025Q3

REPORT INFORMATION
  Report Type: Spontaneous
  Country: US (occurrence: US)
  Receive Date: 20241018
  Receipt Date: 20250803
  Transmission Date: 20251021
  Serious: Yes (Hospitalization, Other)
  Sender: ALEXION PHARMACEUTICALS
  Company Number: US-ASTRAZENECA-202409GLO006096US

PATIENT
  Age: 50 Year
  Sex: Male

DRUGS (1)
  1. QUETIAPINE FUMARATE [Suspect]
     Active Substance: QUETIAPINE FUMARATE

REACTIONS (6)
  - Infectious pleural effusion [Unknown]
  - Gastroenteritis salmonella [Unknown]
  - Hyponatraemia [Unknown]
  - Pneumonia [Unknown]
  - Immunosuppression [Unknown]
  - Delirium [Unknown]
